FAERS Safety Report 14513491 (Version 1)
Quarter: 2018Q1

REPORT INFORMATION
  Report Type: Spontaneous
  Country: US (occurrence: US)
  Receive Date: 20180209
  Receipt Date: 20180209
  Transmission Date: 20180509
  Serious: No
  Sender: FDA-Public Use
  Company Number: US-ALLERGAN-1703144US

PATIENT
  Sex: Female

DRUGS (3)
  1. BIOTIN [Concomitant]
     Active Substance: BIOTIN
     Indication: SUPPLEMENTATION THERAPY
     Dosage: 5000 MG, UNK
     Route: 048
  2. RESTASIS [Suspect]
     Active Substance: CYCLOSPORINE
     Indication: DRY EYE
     Dosage: UNK, QD
     Route: 047
  3. SOOTHE [Concomitant]
     Active Substance: BISMUTH SUBSALICYLATE\GLYCERIN\PROPYLENE GLYCOL
     Route: 048

REACTIONS (3)
  - Eye irritation [Recovered/Resolved]
  - Inappropriate schedule of drug administration [Unknown]
  - Eye irritation [Unknown]
